FAERS Safety Report 6334605-8 (Version None)
Quarter: 2009Q3

REPORT INFORMATION
  Report Type: 
  Country: None (occurrence: None)
  Receive Date: 20090831
  Receipt Date: 20090824
  Transmission Date: 20100115
  Serious: Yes (Other)
  Sender: FDA-Public Use
  Company Number: ZA-ALLERGAN-0911336US

PATIENT
  Age: 66 Year
  Sex: Male

DRUGS (2)
  1. ACULAR [Suspect]
     Indication: CATARACT OPERATION
     Dosage: 1 GTT, QID
     Route: 047
     Dates: start: 20090129, end: 20090204
  2. TOBRADEX [Concomitant]
     Indication: POSTOPERATIVE CARE
     Dosage: UNK
     Dates: start: 20090129

REACTIONS (2)
  - CORNEAL PERFORATION [None]
  - ULCERATIVE KERATITIS [None]
